FAERS Safety Report 12979330 (Version 1)
Quarter: 2016Q4

REPORT INFORMATION
  Report Type: Spontaneous
  Country: US (occurrence: US)
  Receive Date: 20161128
  Receipt Date: 20161128
  Transmission Date: 20170207
  Serious: No
  Sender: FDA-Public Use
  Company Number: US-BAYER-2016-224238

PATIENT
  Age: 81 Year
  Sex: Female

DRUGS (1)
  1. GADAVIST [Suspect]
     Active Substance: GADOBUTROL
     Indication: NUCLEAR MAGNETIC RESONANCE IMAGING
     Dosage: UNK UNK, ONCE
     Dates: start: 20161122, end: 20161122

REACTIONS (3)
  - Rash [None]
  - Musculoskeletal discomfort [None]
  - Pain in extremity [None]

NARRATIVE: CASE EVENT DATE: 20161122
